FAERS Safety Report 18318527 (Version 1)
Quarter: 2020Q3

REPORT INFORMATION
  Report Type: Spontaneous
  Country: DE (occurrence: DE)
  Receive Date: 20200928
  Receipt Date: 20200928
  Transmission Date: 20201103
  Serious: Yes (Hospitalization)
  Sender: FDA-Public Use
  Company Number: DE-TEVA-2020-DE-1831402

PATIENT
  Age: 61 Year
  Sex: Female
  Weight: 130 kg

DRUGS (8)
  1. RAMIPRIL. [Concomitant]
     Active Substance: RAMIPRIL
     Dosage: 2.5 MILLIGRAM DAILY;  1?0?0?0,
     Route: 048
  2. OLANZAPIN [Suspect]
     Active Substance: OLANZAPINE
     Dosage: 15 MILLIGRAM DAILY;  0?0?0?1,
     Route: 048
  3. METFORMIN [Suspect]
     Active Substance: METFORMIN HYDROCHLORIDE
     Dosage: 1000 MILLIGRAM DAILY;  1?0?0?0,
     Route: 048
  4. BRINZOLAMID [Concomitant]
     Dosage: 10 MILLIGRAM DAILY;  0?0?1?0, DROPS
  5. SIMVASTATIN. [Concomitant]
     Active Substance: SIMVASTATIN
     Dosage: 40 MILLIGRAM DAILY; 0?0?1?0,
     Route: 048
  6. ALLOPURINOL. [Concomitant]
     Active Substance: ALLOPURINOL
     Dosage: 300 MILLIGRAM DAILY; 1?0?0?0,
     Route: 048
  7. LATANOPROST. [Concomitant]
     Active Substance: LATANOPROST
     Dosage: .05 MILLIGRAM DAILY;  0?0?1?0, DROPS
  8. METOPROLOL. [Concomitant]
     Active Substance: METOPROLOL
     Dosage: 100 MILLIGRAM DAILY; 1?0?0?0,
     Route: 048

REACTIONS (5)
  - Diarrhoea [Recovering/Resolving]
  - Apathy [Recovering/Resolving]
  - Condition aggravated [Recovering/Resolving]
  - Anosognosia [Recovering/Resolving]
  - General physical health deterioration [Recovering/Resolving]
